FAERS Safety Report 17248339 (Version 2)
Quarter: 2020Q1

REPORT INFORMATION
  Report Type: Spontaneous
  Country: US (occurrence: US)
  Receive Date: 20200108
  Receipt Date: 20200316
  Transmission Date: 20200409
  Serious: Yes (Death)
  Sender: FDA-Public Use
  Company Number: US-LANNETT COMPANY, INC.-US-2019LAN001230

PATIENT
  Sex: Male

DRUGS (3)
  1. LEVETIRACETAM. [Suspect]
     Active Substance: LEVETIRACETAM
     Indication: SEIZURE
     Dosage: 15 ML, BID
     Route: 048
     Dates: start: 20191205
  2. DILANTIN [Concomitant]
     Active Substance: PHENYTOIN
     Indication: SEIZURE
     Dosage: 100 MG, UNK
     Route: 048
  3. DILANTIN [Concomitant]
     Active Substance: PHENYTOIN
     Dosage: 30 MG, QD
     Route: 048

REACTIONS (1)
  - Glioblastoma [Fatal]
